FAERS Safety Report 16740397 (Version 1)
Quarter: 2019Q3

REPORT INFORMATION
  Report Type: Spontaneous
  Country: CA (occurrence: CA)
  Receive Date: 20190826
  Receipt Date: 20190826
  Transmission Date: 20191005
  Serious: Yes (Life-Threatening, Hospitalization)
  Sender: FDA-Public Use
  Company Number: CA-PFIZER INC-2019362680

PATIENT
  Age: 70 Year
  Sex: Female
  Weight: 58 kg

DRUGS (4)
  1. GEMCITABINE HYDROCHLORIDE. [Suspect]
     Active Substance: GEMCITABINE HYDROCHLORIDE
     Indication: SQUAMOUS CELL CARCINOMA OF LUNG
     Dosage: 2050 MG, EVERY 3 WEEKS
     Route: 042
  2. LYRICA [Concomitant]
     Active Substance: PREGABALIN
     Dosage: UNK
  3. VITAMIN D [ERGOCALCIFEROL] [Concomitant]
     Active Substance: ERGOCALCIFEROL
     Dosage: UNK
  4. ZOCOR [Concomitant]
     Active Substance: SIMVASTATIN
     Dosage: UNK

REACTIONS (7)
  - Platelet transfusion [Recovering/Resolving]
  - Thrombotic microangiopathy [Recovering/Resolving]
  - Blood creatinine increased [Recovering/Resolving]
  - Plasmapheresis [Recovering/Resolving]
  - Acute myocardial infarction [Recovering/Resolving]
  - Antiphospholipid syndrome [Recovering/Resolving]
  - Transfusion [Recovering/Resolving]
